FAERS Safety Report 25645818 (Version 1)
Quarter: 2025Q3

REPORT INFORMATION
  Report Type: Report from Study
  Country: US (occurrence: US)
  Receive Date: 20250805
  Receipt Date: 20250805
  Transmission Date: 20251021
  Serious: Yes (Life-Threatening, Other)
  Sender: PFIZER
  Company Number: US-PFIZER INC-PV202500093425

PATIENT

DRUGS (4)
  1. GEMCITABINE HYDROCHLORIDE [Suspect]
     Active Substance: GEMCITABINE HYDROCHLORIDE
     Indication: Pancreatic carcinoma metastatic
     Route: 042
  2. AVUTOMETINIB [Suspect]
     Active Substance: AVUTOMETINIB
     Indication: Pancreatic carcinoma metastatic
     Route: 048
  3. DEFACTINIB [Suspect]
     Active Substance: DEFACTINIB
     Indication: Pancreatic carcinoma metastatic
     Dosage: 200 MG, 2X/DAY (BID)
     Route: 048
  4. PACLITAXEL [Suspect]
     Active Substance: PACLITAXEL
     Indication: Pancreatic carcinoma metastatic
     Route: 042

REACTIONS (1)
  - Febrile neutropenia [Recovered/Resolved]
